FAERS Safety Report 25037511 (Version 1)
Quarter: 2025Q1

REPORT INFORMATION
  Report Type: Spontaneous
  Country: US (occurrence: None)
  Receive Date: 20250304
  Receipt Date: 20250304
  Transmission Date: 20250409
  Serious: No
  Sender: FDA-CTU
  Company Number: None

PATIENT
  Age: 36 Year
  Sex: Male

DRUGS (1)
  1. SKYRIZI [Suspect]
     Active Substance: RISANKIZUMAB-RZAA

REACTIONS (3)
  - Dizziness [None]
  - Heart rate increased [None]
  - Therapy cessation [None]

NARRATIVE: CASE EVENT DATE: 20250124
